FAERS Safety Report 4497764-8 (Version None)
Quarter: 2004Q4

REPORT INFORMATION
  Report Type: 
  Country: None (occurrence: None)
  Receive Date: 20041104
  Receipt Date: 20041020
  Transmission Date: 20050328
  Serious: Yes (Hospitalization)
  Sender: FDA-Public Use
  Company Number: ST-2004-008089

PATIENT
  Age: 77 Year
  Sex: Female
  Weight: 38 kg

DRUGS (5)
  1. OLMETEC [Suspect]
     Indication: HYPERTENSION
     Dosage: 20 MG QD PO
     Route: 048
     Dates: start: 20040601, end: 20040913
  2. GASMOTIN [Suspect]
     Indication: GASTRITIS
     Dosage: 5 MG TID PO
     Route: 048
     Dates: start: 20040712, end: 20040913
  3. NIVADIL ^FUJISAWA^ [Concomitant]
  4. AMLODIN [Concomitant]
  5. CHLOPOLYZIN [Concomitant]

REACTIONS (2)
  - RENAL FAILURE ACUTE [None]
  - SEDATION [None]
